FAERS Safety Report 24162955 (Version 5)
Quarter: 2024Q4

REPORT INFORMATION
  Report Type: Spontaneous
  Country: US (occurrence: US)
  Receive Date: 20240801
  Receipt Date: 20241128
  Transmission Date: 20250115
  Serious: Yes (Other)
  Sender: BIOVITRUM
  Company Number: US-BIOVITRUM-2024-US-010437

PATIENT
  Age: 80 Year
  Sex: Female

DRUGS (1)
  1. VONJO [Suspect]
     Active Substance: PACRITINIB
     Indication: Myelodysplastic syndrome
     Dosage: TWICE DAILY
     Route: 048
     Dates: start: 20240717

REACTIONS (14)
  - Neuropathy peripheral [Unknown]
  - Off label use [Not Recovered/Not Resolved]
  - Pruritus [Recovering/Resolving]
  - Abdominal discomfort [Unknown]
  - Dizziness [Recovering/Resolving]
  - Amnesia [Unknown]
  - Alopecia [Unknown]
  - Somnolence [Recovering/Resolving]
  - Full blood count decreased [Unknown]
  - Weight decreased [Unknown]
  - Mass [Unknown]
  - Muscle spasms [Unknown]
  - Skin discolouration [Unknown]
  - Pulmonary congestion [Unknown]

NARRATIVE: CASE EVENT DATE: 20240717
